FAERS Safety Report 23136264 (Version 3)
Quarter: 2023Q4

REPORT INFORMATION
  Report Type: Report from Study
  Country: EG (occurrence: EG)
  Receive Date: 20231102
  Receipt Date: 20231116
  Transmission Date: 20240109
  Serious: Yes (Other)
  Sender: FDA-Public Use
  Company Number: EG-NOVOPROD-1124397

PATIENT
  Sex: Male

DRUGS (1)
  1. INSULIN HUMAN [Suspect]
     Active Substance: INSULIN HUMAN
     Indication: Diabetes mellitus
     Dosage: 30 IU, QD(20 IU AM +10IU PM )
     Route: 058

REACTIONS (3)
  - Diabetic retinopathy [Not Recovered/Not Resolved]
  - Cataract [Not Recovered/Not Resolved]
  - Hypoacusis [Unknown]
